FAERS Safety Report 13753329 (Version 1)
Quarter: 2017Q3

REPORT INFORMATION
  Report Type: Report from Study
  Country: None (occurrence: US)
  Receive Date: 20170714
  Receipt Date: 20170714
  Transmission Date: 20171127
  Serious: Yes (Hospitalization)
  Sender: FDA-Public Use
  Company Number: US-IPSEN BIOPHARMACEUTICALS, INC.-2012-3956

PATIENT
  Age: 12 Year
  Sex: Male
  Weight: 33.2 kg

DRUGS (2)
  1. INCRELEX [Suspect]
     Active Substance: MECASERMIN
     Indication: PRIMARY INSULIN LIKE GROWTH FACTOR-1 DEFICIENCY
     Route: 051
     Dates: start: 20120516, end: 20120810
  2. INCRELEX [Suspect]
     Active Substance: MECASERMIN
     Route: 051
     Dates: start: 20101105

REACTIONS (1)
  - Seizure [None]

NARRATIVE: CASE EVENT DATE: 20120810
